FAERS Safety Report 8720221 (Version 2)
Quarter: 2013Q1

REPORT INFORMATION
  Report Type: Report from Study
  Country: JP (occurrence: JP)
  Receive Date: 20120813
  Receipt Date: 20130312
  Transmission Date: 20140127
  Serious: Yes (Other)
  Sender: FDA-Public Use
  Company Number: JP-VERTEX PHARMACEUTICALS INC.-AE-2012-011882

PATIENT
  Age: 65 Year
  Sex: Female

DRUGS (11)
  1. VX-950 (TELAPREVIR) [Suspect]
     Indication: CHRONIC HEPATITIS C
     Dosage: 1500 MG, QD
     Route: 048
     Dates: start: 20120507, end: 20120708
  2. RIBAVIRIN [Suspect]
     Indication: CHRONIC HEPATITIS C
     Dosage: 400 MG, QD
     Route: 048
     Dates: start: 20120507, end: 20120624
  3. RIBAVIRIN [Suspect]
     Dosage: 200 MG, QD
     Route: 048
     Dates: start: 20120625, end: 20120730
  4. RIBAVIRIN [Suspect]
     Dosage: 400 MG, QD
     Route: 048
     Dates: start: 20120731, end: 20120820
  5. RIBAVIRIN [Suspect]
     Dosage: 600 MG, QD
     Route: 048
     Dates: start: 20120821, end: 20121022
  6. PEGINTERFERON ALFA-2B [Suspect]
     Indication: CHRONIC HEPATITIS C
     Dosage: 1.5 ?G/KG, QW
     Route: 058
     Dates: start: 20120507, end: 20121015
  7. LOXONIN [Concomitant]
     Dosage: 1 DF, PRN
     Route: 048
     Dates: start: 20120507, end: 20120507
  8. ALLELOCK [Concomitant]
     Dosage: 10 MG, QD
     Route: 048
     Dates: start: 20120509, end: 20120730
  9. ALLOPURINOL [Concomitant]
     Dosage: 200 MG, QD
     Route: 048
     Dates: start: 20120510, end: 20120730
  10. RINDERON-VG [Concomitant]
     Dosage: UNK, PRN
     Route: 061
     Dates: start: 20120625, end: 20120723
  11. FERROMIA [Concomitant]
     Dosage: 2 DF, QD
     Route: 048
     Dates: start: 20120731, end: 20120806

REACTIONS (1)
  - Rash [Recovered/Resolved]
